FAERS Safety Report 17440467 (Version 1)
Quarter: 2020Q1

REPORT INFORMATION
  Report Type: Spontaneous
  Country: US (occurrence: US)
  Receive Date: 20200220
  Receipt Date: 20200220
  Transmission Date: 20200409
  Serious: Yes (Hospitalization, Disabling)
  Sender: FDA-Public Use
  Company Number: None

PATIENT
  Age: 33 Year
  Sex: Female
  Weight: 75.6 kg

DRUGS (8)
  1. SUMATRIPTANS [Concomitant]
  2. EXCEDRIN [Concomitant]
     Active Substance: ACETAMINOPHEN\ASPIRIN\CAFFEINE
  3. TRAZODONE [Concomitant]
     Active Substance: TRAZODONE HYDROCHLORIDE
  4. AIMOVIG [Suspect]
     Active Substance: ERENUMAB-AOOE
     Indication: MIGRAINE
     Dosage: ?          QUANTITY:1 INJECTION(S);OTHER FREQUENCY:ONCE;?
     Route: 030
     Dates: start: 20200213, end: 20200214
  5. BUSPIRONE [Concomitant]
     Active Substance: BUSPIRONE HYDROCHLORIDE
  6. NORETHINDRONE. [Concomitant]
     Active Substance: NORETHINDRONE
  7. FIORINAL [Concomitant]
     Active Substance: ASPIRIN\BUTALBITAL\CAFFEINE
  8. ZOMIG [Concomitant]
     Active Substance: ZOLMITRIPTAN

REACTIONS (13)
  - Pain [None]
  - Myalgia [None]
  - Vomiting [None]
  - Migraine [None]
  - Flatulence [None]
  - Muscle tightness [None]
  - Dysstasia [None]
  - Heart rate increased [None]
  - Constipation [None]
  - Abdominal distension [None]
  - Arthralgia [None]
  - Impaired work ability [None]
  - Blindness unilateral [None]

NARRATIVE: CASE EVENT DATE: 20200213
